FAERS Safety Report 4299538-X (Version None)
Quarter: 2004Q1

REPORT INFORMATION
  Report Type: 
  Country: None (occurrence: None)
  Receive Date: 20040217
  Receipt Date: 20040204
  Transmission Date: 20041129
  Serious: Yes (Death, Hospitalization, Other)
  Sender: FDA-Public Use
  Company Number: 2004007469

PATIENT
  Age: 16 Year
  Sex: Male

DRUGS (7)
  1. ZOLOFT [Suspect]
     Indication: DEPRESSION
     Dosage: 50 MG (DAILY), ORAL
     Route: 048
     Dates: end: 20030422
  2. DICLOFENAC SODIUM [Suspect]
     Indication: BACK PAIN
     Dosage: ORAL
     Route: 048
     Dates: start: 20020401, end: 20030607
  3. PARACETAMOL (PARACETAMOL) [Concomitant]
  4. CYCLOSPORINE [Concomitant]
  5. HYDROXYZINE HCL [Concomitant]
  6. PREDNISOLONE [Concomitant]
  7. OXYCODONE HCL [Concomitant]

REACTIONS (20)
  - ABDOMINAL DISTENSION [None]
  - ABDOMINAL PAIN [None]
  - ASCITES [None]
  - CARDIAC TAMPONADE [None]
  - CEREBRAL DISORDER [None]
  - CHOLESTASIS [None]
  - EPSTEIN-BARR VIRUS INFECTION [None]
  - FLANK PAIN [None]
  - GENERAL PHYSICAL HEALTH DETERIORATION [None]
  - HAEMATOCHEZIA [None]
  - HAEMOGLOBIN DECREASED [None]
  - HEADACHE [None]
  - HEPATIC FAILURE [None]
  - HEPATOMEGALY [None]
  - HEPATOTOXICITY [None]
  - LIVER TRANSPLANT [None]
  - PROCEDURAL COMPLICATION [None]
  - RENAL FAILURE [None]
  - SCRATCH [None]
  - SPLENOMEGALY [None]
